FAERS Safety Report 7282722-0 (Version None)
Quarter: 2011Q1

REPORT INFORMATION
  Report Type: 
  Country: None (occurrence: None)
  Receive Date: 20110209
  Receipt Date: 20110127
  Transmission Date: 20110831
  Serious: Yes (Other)
  Sender: FDA-Public Use
  Company Number: US-BAYER-200932526NA

PATIENT
  Sex: Male

DRUGS (24)
  1. NEXAVAR [Suspect]
  2. DIGOXIN [Concomitant]
     Dosage: 0.125 MG, UNK
  3. GABAPENTIN [Concomitant]
     Dosage: 300 MG, UNK
  4. KLOR-CON [Concomitant]
     Dosage: 10 MEQ, UNK
  5. FISH OIL [Concomitant]
  6. NEXAVAR [Suspect]
     Dosage: 400MG IN MORNING, 200 AT NIGHT - AS USED DOSE: 400-200 MG
     Route: 048
     Dates: start: 20090922, end: 20091005
  7. LOPRESSOR [Concomitant]
     Dosage: 50 MG, QD
  8. ATENOLOL [Concomitant]
  9. HUMALOG [Concomitant]
     Dosage: DOSE DEPENDENT ON BLOOD SUGAR READING
  10. LANTUS [Concomitant]
     Dosage: 100 ML, UNK
  11. HIDROXIZIN [Concomitant]
     Dosage: 10 MG, UNK
  12. DABIGATRAN ETEXILATE [Concomitant]
     Dosage: 150 MG, UNK
  13. NEXAVAR [Suspect]
     Indication: HEPATIC NEOPLASM MALIGNANT
     Route: 048
     Dates: start: 20090902, end: 20090915
  14. CENTRUM SILVER [Concomitant]
  15. LASIX [Concomitant]
     Dosage: 20 MG, UNK
  16. PROSCAR [Concomitant]
     Dosage: 5 MG, UNK
  17. DIOVANE [Concomitant]
     Dosage: 40 MG, UNK
  18. TESSALON [Concomitant]
     Dosage: 200 MG, UNK
  19. MIRAPEX [Concomitant]
     Dosage: 3 MG, UNK
  20. UNCODEABLE ^UNCLASSIFIABLE^ [Concomitant]
     Dosage: 5 MG, UNK
  21. HYDRALAZINE [Concomitant]
     Dosage: 10 MG, UNK
  22. ROBAFEN DM [Concomitant]
  23. IRON [IRON] [Concomitant]
     Dosage: 18 MG, UNK
  24. COQ10 [Concomitant]
     Dosage: 30 MG, UNK

REACTIONS (15)
  - HAEMATOCHEZIA [None]
  - FALL [None]
  - EYE IRRITATION [None]
  - BODY TEMPERATURE INCREASED [None]
  - BLISTER [None]
  - BLOOD PRESSURE INCREASED [None]
  - PRURITUS [None]
  - EYE PRURITUS [None]
  - RASH [None]
  - INJECTION SITE HAEMORRHAGE [None]
  - WOUND HAEMORRHAGE [None]
  - BLOOD GLUCOSE DECREASED [None]
  - TACHYCARDIA [None]
  - COUGH [None]
  - EPISTAXIS [None]
